FAERS Safety Report 21419313 (Version 2)
Quarter: 2023Q1

REPORT INFORMATION
  Report Type: Spontaneous
  Country: US (occurrence: US)
  Receive Date: 20221006
  Receipt Date: 20230102
  Transmission Date: 20230417
  Serious: No
  Sender: FDA-Public Use
  Company Number: US-BRISTOL-MYERS SQUIBB COMPANY-2022-115482

PATIENT
  Age: 63 Year
  Sex: Female

DRUGS (2)
  1. REVLIMID [Suspect]
     Active Substance: LENALIDOMIDE
     Indication: Follicular lymphoma
     Dosage: TAKE 1 CAPSULE(20MG) BY MOUTH ONCE DAILY FOR 21 DAYS ON AND 7 DAYS OFF
     Route: 048
     Dates: start: 20220802
  2. REVLIMID [Suspect]
     Active Substance: LENALIDOMIDE
     Dosage: FREQUENCY: DAILY FOR 21 DAYS
     Route: 048
     Dates: start: 20221125

REACTIONS (4)
  - Full blood count decreased [Unknown]
  - Feeling abnormal [Unknown]
  - Neutrophil count decreased [Unknown]
  - Fatigue [Unknown]
